FAERS Safety Report 7097821-6 (Version None)
Quarter: 2010Q4

REPORT INFORMATION
  Report Type: 
  Country: None (occurrence: None)
  Receive Date: 20101103
  Receipt Date: 20101021
  Transmission Date: 20110411
  Serious: Yes (Other)
  Sender: FDA-Public Use
  Company Number: 020799

PATIENT
  Sex: Male
  Weight: 96.6 kg

DRUGS (7)
  1. LACOSAMIDE [Suspect]
     Indication: CONVULSION
     Dosage: SEE IMAGE, ORAL
     Route: 048
     Dates: start: 20100101, end: 20100801
  2. LACOSAMIDE [Suspect]
     Indication: CONVULSION
     Dosage: SEE IMAGE, ORAL
     Route: 048
     Dates: start: 20100801
  3. TEGRETOL [Concomitant]
  4. ZONEGRAN [Concomitant]
  5. BENICAR HCT [Concomitant]
  6. SIMVASTATIN [Concomitant]
  7. NIASPAN [Concomitant]

REACTIONS (2)
  - GRAND MAL CONVULSION [None]
  - PYREXIA [None]
